FAERS Safety Report 5175582-5 (Version None)
Quarter: 2006Q4

REPORT INFORMATION
  Report Type: 
  Country: None (occurrence: None)
  Receive Date: 20061212
  Receipt Date: 20061212
  Transmission Date: 20070319
  Serious: Yes (Hospitalization)
  Sender: FDA-Public Use
  Company Number: None

PATIENT
  Age: 8 Year
  Sex: Male
  Weight: 29.4838 kg

DRUGS (1)
  1. BACTRIM [Suspect]
     Indication: SINUSITIS
     Dosage: 1 TABLET BID PO
     Route: 048
     Dates: start: 20061201, end: 20061207

REACTIONS (3)
  - DRUG HYPERSENSITIVITY [None]
  - HEADACHE [None]
  - PYREXIA [None]
